FAERS Safety Report 6858393-1 (Version None)
Quarter: 2010Q3

REPORT INFORMATION
  Report Type: 
  Country: None (occurrence: None)
  Receive Date: 20100719
  Receipt Date: 20080205
  Transmission Date: 20110219
  Serious: No
  Sender: FDA-Public Use
  Company Number: US-PFIZER INC-2008012670

PATIENT
  Sex: Female
  Weight: 71.818 kg

DRUGS (6)
  1. CHANTIX [Suspect]
     Indication: SMOKING CESSATION THERAPY
     Dates: start: 20070101
  2. CALCIUM [Concomitant]
  3. LORTAB [Concomitant]
  4. FISH OIL [Concomitant]
  5. LACTOBACILLUS ACIDOPHILUS [Concomitant]
  6. IBUPROFEN [Concomitant]

REACTIONS (2)
  - ABDOMINAL PAIN UPPER [None]
  - CONSTIPATION [None]
